FAERS Safety Report 6692584-8 (Version None)
Quarter: 2010Q2

REPORT INFORMATION
  Report Type: 
  Country: None (occurrence: None)
  Receive Date: 20100422
  Receipt Date: 20100412
  Transmission Date: 20101027
  Serious: Yes (Other)
  Sender: FDA-Public Use
  Company Number: US-PFIZER INC-2010046792

PATIENT
  Age: 56 Year
  Sex: Male

DRUGS (2)
  1. ZYVOX [Suspect]
     Indication: PNEUMONIA
  2. DRUG, UNSPECIFIED [Concomitant]

REACTIONS (1)
  - ENCEPHALOPATHY [None]
